FAERS Safety Report 21167705 (Version 1)
Quarter: 2022Q3

REPORT INFORMATION
  Report Type: Report from Study
  Country: US (occurrence: US)
  Receive Date: 20220803
  Receipt Date: 20220803
  Transmission Date: 20221027
  Serious: Yes (Other)
  Sender: FDA-Public Use
  Company Number: US-AMRYT PHARMACEUTICALS DAC-AEGR005963

PATIENT
  Sex: Female

DRUGS (1)
  1. JUXTAPID [Suspect]
     Active Substance: LOMITAPIDE MESYLATE
     Indication: Product used for unknown indication
     Dosage: UNK

REACTIONS (3)
  - Liver function test increased [Unknown]
  - Blood cholesterol increased [Unknown]
  - Inappropriate schedule of product administration [Unknown]
